FAERS Safety Report 8168558-7 (Version None)
Quarter: 2012Q1

REPORT INFORMATION
  Report Type: 
  Country: None (occurrence: None)
  Receive Date: 20120227
  Receipt Date: 20120227
  Transmission Date: 20120608
  Serious: No
  Sender: FDA-Public Use
  Company Number: None

PATIENT
  Age: 58 Year
  Sex: Female
  Weight: 99.79 kg

DRUGS (1)
  1. ZETIA [Suspect]
     Indication: LOW DENSITY LIPOPROTEIN
     Dosage: 1 TABLET
     Dates: start: 20120216, end: 20120222

REACTIONS (5)
  - MUSCLE SPASMS [None]
  - RASH PRURITIC [None]
  - MOVEMENT DISORDER [None]
  - DIARRHOEA [None]
  - DYSSTASIA [None]
